FAERS Safety Report 8802249 (Version 1)
Quarter: 2012Q4

REPORT INFORMATION
  Report Type: Report from Study
  Country: US (occurrence: US)
  Receive Date: 20120921
  Receipt Date: 20120921
  Transmission Date: 20130627
  Serious: Yes (Hospitalization)
  Sender: FDA-Public Use
  Company Number: US-ROCHE-1098037

PATIENT
  Age: 69 None
  Sex: Female
  Weight: 75.36 kg

DRUGS (2)
  1. XELODA [Suspect]
     Indication: BREAST CANCER METASTATIC
     Dosage: 3 pills in morning
     Route: 048
     Dates: start: 20120730, end: 201208
  2. IXEMPRA [Suspect]
     Indication: BREAST CANCER METASTATIC
     Dosage: 3 pills in the evening
     Route: 042
     Dates: start: 20120730

REACTIONS (6)
  - Blister [Unknown]
  - Dyspepsia [Unknown]
  - Weight decreased [Unknown]
  - Oropharyngeal pain [Not Recovered/Not Resolved]
  - Arthralgia [Not Recovered/Not Resolved]
  - Abdominal distension [Not Recovered/Not Resolved]
